FAERS Safety Report 4797636-5 (Version None)
Quarter: 2005Q4

REPORT INFORMATION
  Report Type: 
  Country: None (occurrence: None)
  Receive Date: 20051013
  Receipt Date: 20050825
  Transmission Date: 20060501
  Serious: Yes (Hospitalization)
  Sender: FDA-Public Use
  Company Number: FR-MERCK-0508FRA00046

PATIENT
  Age: 78 Year
  Sex: Male
  Weight: 80 kg

DRUGS (14)
  1. ZOCOR [Suspect]
     Route: 048
  2. CLONAZEPAM [Suspect]
     Indication: HEADACHE
     Route: 048
     Dates: start: 20050706, end: 20050709
  3. ALLOPURINOL [Suspect]
     Indication: GOUT
     Route: 048
  4. ASPIRIN LYSINE [Suspect]
     Route: 048
  5. OMEPRAZOLE [Suspect]
     Route: 048
  6. CLOPIDOGREL BISULFATE [Suspect]
     Route: 048
  7. INSULIN, BIPHASIC ISOPHANE [INJECTION] [Concomitant]
     Indication: DIABETES MELLITUS
     Route: 058
  8. NAFRONYL OXALATE [Concomitant]
     Route: 048
  9. AMLODIPINE BESYLATE [Concomitant]
     Route: 048
  10. MOLSIDOMINE [Concomitant]
     Route: 048
  11. TRANDOLAPRIL [Concomitant]
     Route: 048
  12. FUROSEMIDE [Concomitant]
     Route: 048
  13. BISOPROLOL FUMARATE [Concomitant]
     Indication: HYPERTENSION
     Route: 048
  14. BISOPROLOL FUMARATE [Concomitant]
     Indication: ISCHAEMIC CARDIOMYOPATHY
     Route: 048

REACTIONS (3)
  - CHILLS [None]
  - HOT FLUSH [None]
  - HYPERHIDROSIS [None]
